FAERS Safety Report 9051261 (Version 2)
Quarter: 2013Q1

REPORT INFORMATION
  Report Type: Report from Study
  Country: US (occurrence: US)
  Receive Date: 20130206
  Receipt Date: 20130312
  Transmission Date: 20140127
  Serious: Yes (Hospitalization, Other)
  Sender: FDA-Public Use
  Company Number: US-ASTELLAS-2013US001286

PATIENT
  Age: 78 Year
  Sex: Male

DRUGS (5)
  1. ERLOTINIB TABLET [Suspect]
     Indication: HEPATIC CANCER
     Dosage: UNK
     Route: 048
  2. BEVACIZUMAB [Suspect]
     Indication: HEPATIC CANCER
     Dosage: UNK
     Route: 042
  3. LOVENOX [Suspect]
     Indication: PULMONARY EMBOLISM
     Dosage: UNK
     Route: 065
     Dates: start: 20130117
  4. LOVENOX [Suspect]
     Dosage: UNK
     Route: 065
  5. COUMADIN                           /00014802/ [Suspect]
     Indication: PULMONARY EMBOLISM
     Dosage: UNK
     Route: 065
     Dates: start: 20130117

REACTIONS (4)
  - Off label use [Unknown]
  - Haemorrhage urinary tract [Unknown]
  - Pulmonary embolism [Unknown]
  - International normalised ratio increased [Unknown]
